FAERS Safety Report 5406775-7 (Version None)
Quarter: 2007Q3

REPORT INFORMATION
  Report Type: 
  Country: None (occurrence: None)
  Receive Date: 20070807
  Receipt Date: 20070802
  Transmission Date: 20080115
  Serious: Yes (Hospitalization, Other)
  Sender: FDA-Public Use
  Company Number: PHEH2007US10698

PATIENT
  Age: 76 Year
  Sex: Male

DRUGS (2)
  1. PROCRIT [Concomitant]
     Dosage: UNK, QW
  2. EXJADE [Suspect]
     Indication: MYELODYSPLASTIC SYNDROME
     Dosage: 2000 MG, QD
     Route: 048
     Dates: start: 20070628, end: 20070725

REACTIONS (5)
  - ASTHENIA [None]
  - DECREASED APPETITE [None]
  - DIARRHOEA [None]
  - GAIT DISTURBANCE [None]
  - HAEMATOCHEZIA [None]
